FAERS Safety Report 7540321-7 (Version None)
Quarter: 2011Q2

REPORT INFORMATION
  Report Type: 
  Country: None (occurrence: None)
  Receive Date: 20110610
  Receipt Date: 20110606
  Transmission Date: 20111010
  Serious: Yes (Hospitalization, Other)
  Sender: FDA-Public Use
  Company Number: JP-PFIZER INC-2011115684

PATIENT
  Age: 64 Year
  Sex: Male
  Weight: 62 kg

DRUGS (5)
  1. CELECOXIB [Suspect]
     Dosage: 100 MG, 2X/DAY
     Route: 048
     Dates: start: 20110419, end: 20110525
  2. LOXONIN [Concomitant]
     Indication: INTERVERTEBRAL DISC DISORDER
     Dosage: UNK
     Route: 023
     Dates: start: 20110419
  3. LYRICA [Suspect]
     Indication: INTERVERTEBRAL DISC DISORDER
     Dosage: 75 MG, 2X/DAY
     Route: 048
     Dates: start: 20110419, end: 20110520
  4. LYRICA [Suspect]
     Indication: BACK PAIN
  5. FAMOTIDINE [Suspect]
     Dosage: 10 MG, 2X/DAY
     Route: 048
     Dates: start: 20110419, end: 20110525

REACTIONS (7)
  - ENCEPHALOPATHY [None]
  - DYSPNOEA [None]
  - FALL [None]
  - DECREASED APPETITE [None]
  - SOMNOLENCE [None]
  - DIZZINESS [None]
  - TINNITUS [None]
